FAERS Safety Report 5565404-2 (Version None)
Quarter: 2007Q4

REPORT INFORMATION
  Report Type: 
  Country: None (occurrence: None)
  Receive Date: 20071218
  Receipt Date: 20050228
  Transmission Date: 20080405
  Serious: Yes (Death, Other)
  Sender: FDA-Public Use
  Company Number: US-ROCHE-397205

PATIENT
  Age: 38 Year
  Sex: Male

DRUGS (2)
  1. PEGASYS [Suspect]
     Route: 065
     Dates: end: 20040701
  2. COPEGUS [Suspect]
     Route: 065
     Dates: end: 20040701

REACTIONS (2)
  - BLOOD BILIRUBIN INCREASED [None]
  - HEPATIC FAILURE [None]
